FAERS Safety Report 5220041-4 (Version None)
Quarter: 2006Q4

REPORT INFORMATION
  Report Type: 
  Country: None (occurrence: None)
  Receive Date: 20061201
  Receipt Date: 20060719
  Transmission Date: 20070319
  Serious: No
  Sender: FDA-Public Use
  Company Number: 2006PV017856

PATIENT
  Age: 52 Year
  Sex: Female
  Weight: 123.832 kg

DRUGS (2)
  1. BYETTA [Suspect]
     Indication: DIABETES MELLITUS NON-INSULIN-DEPENDENT
     Dosage: 5 MCG;BID;SC
     Route: 058
     Dates: start: 20060719
  2. GLIPIZIDE [Concomitant]

REACTIONS (1)
  - MEDICATION ERROR [None]
